FAERS Safety Report 5366787-9 (Version None)
Quarter: 2007Q2

REPORT INFORMATION
  Report Type: 
  Country: None (occurrence: None)
  Receive Date: 20070622
  Receipt Date: 20060920
  Transmission Date: 20071010
  Serious: No
  Sender: FDA-Public Use
  Company Number: US-ASTRAZENECA-2006UW18384

PATIENT
  Age: 85 Year
  Sex: Female
  Weight: 61.2 kg

DRUGS (11)
  1. RHINOCORT [Suspect]
     Indication: POSTNASAL DRIP
     Route: 045
     Dates: start: 20060901
  2. ESTRACE [Concomitant]
  3. OMEPRAZOLE [Concomitant]
  4. DIOVAN HCT [Concomitant]
  5. ATENOLOL [Concomitant]
  6. VYTORIN [Concomitant]
  7. MSM [Concomitant]
  8. ASCORBIC ACID [Concomitant]
  9. CALCIUM COMPLETE [Concomitant]
  10. VITAMIN CAP [Concomitant]
  11. SALMON OIL [Concomitant]

REACTIONS (4)
  - DRY MOUTH [None]
  - DRY THROAT [None]
  - NASAL DRYNESS [None]
  - PHARYNGOLARYNGEAL PAIN [None]
